FAERS Safety Report 10517624 (Version 2)
Quarter: 2014Q4

REPORT INFORMATION
  Report Type: Spontaneous
  Country: BE (occurrence: BE)
  Receive Date: 20141014
  Receipt Date: 20141231
  Transmission Date: 20150528
  Serious: Yes (Disabling, Other)
  Sender: FDA-Public Use
  Company Number: BE-ABBVIE-14K-013-1294958-00

PATIENT
  Age: 60 Year
  Sex: Male
  Weight: 82 kg

DRUGS (1)
  1. HUMIRA [Suspect]
     Active Substance: ADALIMUMAB
     Indication: PSORIASIS
     Route: 065
     Dates: start: 200710, end: 201312

REACTIONS (2)
  - Hepatocellular carcinoma [Not Recovered/Not Resolved]
  - Cirrhosis alcoholic [Unknown]
